FAERS Safety Report 6820106-7 (Version None)
Quarter: 2010Q3

REPORT INFORMATION
  Report Type: 
  Country: None (occurrence: None)
  Receive Date: 20100707
  Receipt Date: 20100629
  Transmission Date: 20110219
  Serious: Yes (Disabling, Other)
  Sender: FDA-Public Use
  Company Number: US-ASTRAZENECA-2010SE18129

PATIENT
  Age: 67 Year
  Sex: Female
  Weight: 59 kg

DRUGS (24)
  1. SEROQUEL XR [Suspect]
     Indication: DEPRESSION
     Route: 048
     Dates: start: 20100412, end: 20100420
  2. METOPROLOL SUCCINATE [Suspect]
     Route: 048
     Dates: start: 20090527
  3. BUSPIRONE HCL [Concomitant]
     Route: 048
     Dates: start: 20100226
  4. K-DUR [Concomitant]
     Route: 048
     Dates: start: 20090909
  5. PRAVACHOL [Concomitant]
     Route: 048
     Dates: start: 20090527
  6. SINEMET CR [Concomitant]
     Dosage: 25-100 MG 2 TIMES AT BEDTIME
     Route: 048
     Dates: start: 20100208
  7. SINGULAIR [Concomitant]
     Indication: MULTIPLE ALLERGIES
     Route: 048
     Dates: start: 20090909
  8. NIASPAN [Concomitant]
     Indication: BLOOD CHOLESTEROL INCREASED
     Route: 048
     Dates: start: 20090527
  9. ADVAIR DISKUS 100/50 [Concomitant]
     Indication: ASTHMA
     Dosage: 500-50 MCG/DOSE EVERY TWELVE HOURS
     Route: 055
     Dates: start: 20090909
  10. VENLAFAXINE HCL [Concomitant]
     Route: 048
     Dates: start: 20100323
  11. PREDNISONE TAB [Concomitant]
     Route: 048
     Dates: start: 20100323
  12. TYLENOL (CAPLET) [Concomitant]
     Route: 048
     Dates: start: 20091116
  13. NAPROSYN [Concomitant]
     Route: 048
     Dates: start: 20091014
  14. ACTONEL [Concomitant]
     Route: 048
     Dates: start: 20090527
  15. ALBUTEROL SULFATE [Concomitant]
     Dosage: (2.5 MG/3 ML) 0.083% FOUR TIMES DAILY, AS NEEDED
     Route: 055
     Dates: start: 20090527
  16. TRAZODONE HCL [Concomitant]
     Indication: SLEEP DISORDER
     Dosage: 1-3 TABS AT NIGHT, PRN
     Route: 048
     Dates: start: 20100323
  17. FOLIC ACID [Concomitant]
     Route: 048
     Dates: start: 20090527
  18. ACETAMINOPHEN AND HYDROCODONE BITARTRATE [Concomitant]
     Dosage: 7.5-500MG FOUR TIMES DAILY, AS NEEDED
     Route: 048
     Dates: start: 20090527
  19. VESICARE [Concomitant]
     Route: 048
     Dates: start: 20100527
  20. ALPRAZOLAM [Concomitant]
     Route: 048
     Dates: start: 20090527
  21. OXYCODONE HCL AND ACETAMINOPHEN [Concomitant]
     Indication: PAIN
     Dosage: 5-325 MG QID, PRN
     Route: 048
     Dates: start: 20091014
  22. PHENERGAN [Concomitant]
     Indication: NAUSEA
     Dosage: 1 TABLET 4-6 HOURS, PRN
     Route: 048
     Dates: start: 20091221
  23. COMBIVENT [Concomitant]
     Dosage: 103-18 MCG/ACT 2 INHALATION EVERY FOURHOURS, AS NEEDED
     Route: 055
     Dates: start: 20091228
  24. OXYBUTYNIN CHLORIDE [Concomitant]
     Dosage: 1 AND HALF TABLET DAILY
     Route: 048
     Dates: start: 20100316

REACTIONS (11)
  - AMNESIA [None]
  - APPETITE DISORDER [None]
  - ASTHENIA [None]
  - COGNITIVE DISORDER [None]
  - CONFUSIONAL STATE [None]
  - DRUG DOSE OMISSION [None]
  - FATIGUE [None]
  - FEELING ABNORMAL [None]
  - PANIC REACTION [None]
  - SLEEP DISORDER [None]
  - SOCIAL AVOIDANT BEHAVIOUR [None]
